FAERS Safety Report 9137700 (Version 1)
Quarter: 2013Q1

REPORT INFORMATION
  Report Type: Spontaneous
  Country: US (occurrence: US)
  Receive Date: 20130304
  Receipt Date: 20130304
  Transmission Date: 20140127
  Serious: No
  Sender: FDA-Public Use
  Company Number: US-ENDO PHARMACEUTICALS INC.-PERC20120051

PATIENT
  Sex: Female

DRUGS (1)
  1. PERCOCET-5 [Suspect]
     Indication: PROCEDURAL PAIN
     Dosage: 2.5 MG/162.5 MG
     Route: 048
     Dates: end: 20120314

REACTIONS (2)
  - Euphoric mood [Unknown]
  - Agitation [Unknown]
